FAERS Safety Report 21692373 (Version 3)
Quarter: 2024Q1

REPORT INFORMATION
  Report Type: Spontaneous
  Country: BE (occurrence: BE)
  Receive Date: 20221207
  Receipt Date: 20240109
  Transmission Date: 20240409
  Serious: Yes (Hospitalization, Other)
  Sender: FDA-Public Use
  Company Number: BE-BRISTOL-MYERS SQUIBB COMPANY-2022-146739

PATIENT
  Age: 67 Year
  Sex: Male

DRUGS (2)
  1. DASATINIB [Suspect]
     Active Substance: DASATINIB
     Indication: Chronic myeloid leukaemia
     Dosage: 100 MILLIGRAM, QD, 100 MILLIGRAM DAILY; ONCE A DAY
     Dates: start: 2019, end: 202107
  2. DASATINIB [Suspect]
     Active Substance: DASATINIB
     Dosage: DOSE WAS TAPPERED OFF.
     Dates: end: 202107

REACTIONS (1)
  - Chylothorax [Unknown]
